FAERS Safety Report 7787415-9 (Version None)
Quarter: 2011Q3

REPORT INFORMATION
  Report Type: 
  Country: None (occurrence: None)
  Receive Date: 20110929
  Receipt Date: 20110926
  Transmission Date: 20111222
  Serious: Yes (Death, Other)
  Sender: FDA-Public Use
  Company Number: PHHY2011AU82020

PATIENT
  Sex: Female

DRUGS (7)
  1. BETASERON [Concomitant]
     Dosage: UNK
     Dates: start: 20010501, end: 20110801
  2. GILENYA [Suspect]
     Indication: MULTIPLE SCLEROSIS
     Dosage: 0.5 MG, UNK
     Route: 048
     Dates: start: 20110621, end: 20110827
  3. IBUPROFEN [Concomitant]
     Dosage: UNK
  4. TRIFENE [Concomitant]
     Route: 048
  5. TRAMADOL HYDROCHLORIDE [Concomitant]
     Dosage: UNK
     Route: 048
  6. ORAL CONTRACEPTIVE NOS [Concomitant]
  7. VALPROATE SODIUM [Concomitant]
     Dosage: UNK
     Route: 048

REACTIONS (8)
  - CARDIAC DISORDER [None]
  - BLOOD PRESSURE ABNORMAL [None]
  - COAGULOPATHY [None]
  - PAIN IN EXTREMITY [None]
  - CARDIOGENIC SHOCK [None]
  - CHEST PAIN [None]
  - MYOCARDIAL INFARCTION [None]
  - CIRCULATORY COLLAPSE [None]
